FAERS Safety Report 6191910-6 (Version None)
Quarter: 2009Q2

REPORT INFORMATION
  Report Type: 
  Country: None (occurrence: None)
  Receive Date: 20090515
  Receipt Date: 20090508
  Transmission Date: 20091009
  Serious: Yes (Hospitalization)
  Sender: FDA-Public Use
  Company Number: FR-JNJFOC-20090406533

PATIENT
  Sex: Female

DRUGS (7)
  1. MOTILIUM [Suspect]
     Indication: GASTROENTERITIS
     Route: 065
  2. MOTILIUM [Suspect]
     Indication: VOMITING
     Route: 065
  3. TRAMADOL HYDROCHLORIDE [Suspect]
     Indication: DRUG USE FOR UNKNOWN INDICATION
     Route: 048
  4. ARESTAL [Suspect]
     Indication: GASTROENTERITIS
     Route: 065
  5. ARESTAL [Suspect]
     Indication: VOMITING
     Route: 065
  6. SPASFON [Suspect]
     Indication: GASTROENTERITIS
     Route: 065
  7. SPASFON [Suspect]
     Indication: VOMITING
     Route: 065

REACTIONS (1)
  - GRAND MAL CONVULSION [None]
